FAERS Safety Report 22370122 (Version 2)
Quarter: 2023Q4

REPORT INFORMATION
  Report Type: Spontaneous
  Country: US (occurrence: None)
  Receive Date: 20230526
  Receipt Date: 20231025
  Transmission Date: 20240110
  Serious: Yes (Other)
  Sender: FDA-Public Use
  Company Number: US-ROCHE-3355885

PATIENT
  Sex: Female

DRUGS (1)
  1. ACTEMRA [Suspect]
     Active Substance: TOCILIZUMAB
     Indication: Rheumatoid arthritis
     Dosage: STRENGTH: 400MG/20ML,  80MG/4ML, DOSE: 8MG/KG
     Route: 042
     Dates: start: 202301

REACTIONS (3)
  - Fall [Unknown]
  - Femur fracture [Unknown]
  - Wound [Unknown]
